FAERS Safety Report 6546297-3 (Version None)
Quarter: 2010Q1

REPORT INFORMATION
  Report Type: 
  Country: None (occurrence: None)
  Receive Date: 20100122
  Receipt Date: 20100113
  Transmission Date: 20100710
  Serious: Yes (Life-Threatening, Other)
  Sender: FDA-Public Use
  Company Number: US-ROCHE-662374

PATIENT
  Sex: Female
  Weight: 106.4 kg

DRUGS (5)
  1. PEG-INTERFERON A-2A (RO 25-8310) [Suspect]
     Indication: HEPATITIS C
     Dosage: FORM: PRE-FILLED SYRINGE
     Route: 058
     Dates: start: 20090811, end: 20091023
  2. RIBAVIRIN [Suspect]
     Indication: HEPATITIS C
     Dosage: DIVIDED DOSES. 600 MG IN AM AND 800 MG IN PM.
     Route: 048
     Dates: start: 20090811, end: 20091023
  3. ZOLOFT [Concomitant]
     Indication: DEPRESSION
     Dosage: START DATE: BEFORE TRIAL. IN DIVIDED DOSES DAILY.
     Route: 048
  4. KLONOPIN [Concomitant]
     Indication: DEPRESSION
     Dosage: START DATE: BEFORE TRIAL. IN DIVIDED DOSE DAILY.
     Route: 048
  5. GEODON [Concomitant]
     Dosage: DRUG REPORTED: GEODAN

REACTIONS (10)
  - ANAEMIA [None]
  - BLOOD GLUCOSE INCREASED [None]
  - DEEP VEIN THROMBOSIS [None]
  - DYSPNOEA [None]
  - INJECTION SITE RASH [None]
  - LOSS OF CONSCIOUSNESS [None]
  - PULMONARY EMBOLISM [None]
  - SKIN MASS [None]
  - VERTIGO [None]
  - WHITE BLOOD CELL COUNT DECREASED [None]
